FAERS Safety Report 5819604-4 (Version None)
Quarter: 2008Q3

REPORT INFORMATION
  Report Type: 
  Country: None (occurrence: None)
  Receive Date: 20080723
  Receipt Date: 20080701
  Transmission Date: 20090109
  Serious: No
  Sender: FDA-Public Use
  Company Number: US-BOEHRINGER INGELHEIM GMBH, GERMANY-2008-BP-10447BP

PATIENT
  Age: 54 Year
  Sex: Female

DRUGS (3)
  1. ZANTAC 150 [Suspect]
     Indication: DYSPEPSIA
     Route: 048
  2. SYNTHROID [Concomitant]
     Route: 048
  3. OXYBUTYNIN [Concomitant]
     Route: 048

REACTIONS (1)
  - DRUG EFFECT DECREASED [None]
